FAERS Safety Report 9872951 (Version 2)
Quarter: 2014Q1

REPORT INFORMATION
  Report Type: Other
  Country: US (occurrence: US)
  Receive Date: 20140206
  Receipt Date: 20140206
  Transmission Date: 20141002
  Serious: No
  Sender: FDA-Public Use
  Company Number: US-ACORDA-ACO_21637_2011

PATIENT
  Age: 47 Year
  Sex: Female

DRUGS (9)
  1. AMPYRA [Suspect]
     Indication: GAIT DISTURBANCE
     Dosage: 10 MG, BID
     Route: 048
     Dates: start: 20101227, end: 20110126
  2. AMPYRA [Suspect]
     Dosage: UNK
     Dates: start: 2012, end: 2012
  3. TYSABRI [Concomitant]
     Indication: MULTIPLE SCLEROSIS
     Dosage: 300 MG, EVERY 4 WEEKS
     Route: 042
  4. BACLOFEN [Concomitant]
     Indication: MULTIPLE SCLEROSIS
     Dosage: 10 MG, TID
     Route: 048
  5. SANCTURA [Concomitant]
     Indication: MULTIPLE SCLEROSIS
     Dosage: 20 MG, QD
     Route: 048
  6. FLOMAX [Concomitant]
     Indication: MULTIPLE SCLEROSIS
  7. PROVIGIL [Concomitant]
     Indication: MULTIPLE SCLEROSIS
     Dosage: 200 MG, BID
  8. VASOTEC [Concomitant]
     Indication: HYPERTENSION
     Dosage: 20 MG, 2-AM, 1-PM
     Route: 048
  9. DYAZIDE [Concomitant]
     Indication: HYPERTENSION
     Dosage: 12.5 UNK, QD

REACTIONS (4)
  - Adverse drug reaction [Recovered/Resolved]
  - Insomnia [Recovered/Resolved]
  - Back pain [Recovered/Resolved]
  - Balance disorder [Recovered/Resolved]
